FAERS Safety Report 7539606-X (Version None)
Quarter: 2011Q2

REPORT INFORMATION
  Report Type: 
  Country: None (occurrence: None)
  Receive Date: 20110610
  Receipt Date: 20110603
  Transmission Date: 20111010
  Serious: Yes (Death)
  Sender: FDA-Public Use
  Company Number: JP-BRISTOL-MYERS SQUIBB COMPANY-15808769

PATIENT
  Age: 59 Year
  Sex: Female

DRUGS (4)
  1. LEUCOVORIN CALCIUM [Suspect]
     Indication: RECTAL CANCER
  2. FLUOROURACIL [Suspect]
     Indication: RECTAL CANCER
     Route: 042
  3. ERBITUX [Suspect]
     Indication: RECTAL CANCER
     Route: 042
     Dates: start: 20110516
  4. OXALIPLATIN [Suspect]
     Indication: RECTAL CANCER

REACTIONS (1)
  - DISSEMINATED INTRAVASCULAR COAGULATION [None]
